FAERS Safety Report 8069814-3 (Version None)
Quarter: 2012Q1

REPORT INFORMATION
  Report Type: 
  Country: None (occurrence: None)
  Receive Date: 20120125
  Receipt Date: 20120125
  Transmission Date: 20120608
  Serious: Yes (Other)
  Sender: FDA-Public Use
  Company Number: None

PATIENT
  Age: 55 Year
  Sex: Male
  Weight: 199.58 kg

DRUGS (2)
  1. PROPRANOLOL [Concomitant]
     Dosage: 80 MG
     Route: 048
     Dates: start: 20100601, end: 20120105
  2. INDERAL LA [Suspect]
     Indication: MIGRAINE
     Dosage: 120 MG
     Route: 048
     Dates: start: 19870501, end: 20100601

REACTIONS (12)
  - BLISTER [None]
  - PEYRONIE'S DISEASE [None]
  - DYSPNOEA [None]
  - EXTRASYSTOLES [None]
  - SKIN EXFOLIATION [None]
  - CHILLS [None]
  - SKIN BURNING SENSATION [None]
  - MIDDLE INSOMNIA [None]
  - PYREXIA [None]
  - PAINFUL ERECTION [None]
  - HEART RATE DECREASED [None]
  - WEIGHT INCREASED [None]
